FAERS Safety Report 12933744 (Version 1)
Quarter: 2016Q4

REPORT INFORMATION
  Report Type: Spontaneous
  Country: GB (occurrence: GB)
  Receive Date: 20161111
  Receipt Date: 20161111
  Transmission Date: 20170207
  Serious: Yes (Life-Threatening, Hospitalization, Other)
  Sender: FDA-Public Use
  Company Number: GB-GLAXOSMITHKLINE-GB2016166307

PATIENT
  Age: 19 Year
  Sex: Female
  Weight: 114.3 kg

DRUGS (1)
  1. ORLISTAT [Suspect]
     Active Substance: ORLISTAT
     Indication: WEIGHT DECREASED
     Dosage: 1 DF, TID
     Route: 048
     Dates: start: 2003, end: 2003

REACTIONS (6)
  - Pseudocyst [Unknown]
  - Coma [Not Recovered/Not Resolved]
  - Diabetes mellitus [Unknown]
  - Pancreatitis [Not Recovered/Not Resolved]
  - Abnormal loss of weight [Unknown]
  - Pancreatic duct rupture [Not Recovered/Not Resolved]
